FAERS Safety Report 4998315-1 (Version None)
Quarter: 2006Q2

REPORT INFORMATION
  Report Type: 
  Country: None (occurrence: None)
  Receive Date: 20060508
  Receipt Date: 20060424
  Transmission Date: 20061013
  Serious: Yes (Life-Threatening, Hospitalization, Other)
  Sender: FDA-Public Use
  Company Number: 2006US-02137

PATIENT
  Age: 60 Year
  Sex: Female

DRUGS (4)
  1. CEPHALEXIN [Suspect]
  2. WARFARIN SODIUM [Concomitant]
  3. METRONIDAZOLE [Concomitant]
  4. TRIMETHOPRIM [Concomitant]

REACTIONS (11)
  - CONDITION AGGRAVATED [None]
  - DEEP VEIN THROMBOSIS [None]
  - DRUG INTERACTION [None]
  - HYPOVOLAEMIC SHOCK [None]
  - INTERNATIONAL NORMALISED RATIO INCREASED [None]
  - MUSCLE HAEMORRHAGE [None]
  - PAIN [None]
  - PYREXIA [None]
  - RETROPERITONEAL HAEMATOMA [None]
  - URETERIC OBSTRUCTION [None]
  - WHITE BLOOD CELL COUNT INCREASED [None]
